FAERS Safety Report 20660321 (Version 1)
Quarter: 2022Q1

REPORT INFORMATION
  Report Type: Spontaneous
  Country: US (occurrence: US)
  Receive Date: 20220331
  Receipt Date: 20220331
  Transmission Date: 20220423
  Serious: No
  Sender: FDA-Public Use
  Company Number: US-PFIZER INC-2021777409

PATIENT
  Age: 70 Year
  Sex: Female
  Weight: 95.25 kg

DRUGS (2)
  1. IBRANCE [Suspect]
     Active Substance: PALBOCICLIB
     Indication: Breast cancer female
     Dosage: 100 MG, CYCLIC (TAKE ONCE DAILY FOR 21 DAYS AND THEN OFF FOR 7 DAYS)
     Dates: start: 202008, end: 202010
  2. IBRANCE [Suspect]
     Active Substance: PALBOCICLIB
     Dosage: UNK
     Dates: start: 202011

REACTIONS (3)
  - COVID-19 [Recovered/Resolved]
  - Headache [Recovered/Resolved]
  - Hair texture abnormal [Unknown]

NARRATIVE: CASE EVENT DATE: 20201001
